FAERS Safety Report 5534496-9 (Version None)
Quarter: 2007Q4

REPORT INFORMATION
  Report Type: 
  Country: None (occurrence: None)
  Receive Date: 20071205
  Receipt Date: 20071126
  Transmission Date: 20080405
  Serious: Yes (Life-Threatening, Hospitalization)
  Sender: FDA-Public Use
  Company Number: GB-BRISTOL-MYERS SQUIBB COMPANY-14003750

PATIENT
  Age: 57 Year
  Sex: Male

DRUGS (4)
  1. TRAZODONE HCL [Suspect]
     Indication: BIPOLAR DISORDER
     Dosage: FORMULATION : TABLET
     Route: 048
     Dates: end: 20071029
  2. OLANZAPINE [Suspect]
     Indication: BIPOLAR DISORDER
     Route: 048
     Dates: end: 20071029
  3. CARBAMAZEPINE [Concomitant]
     Dates: end: 20071029
  4. FLUOXETINE [Concomitant]
     Dates: end: 20071029

REACTIONS (7)
  - AGITATION [None]
  - BLOOD CREATINE PHOSPHOKINASE INCREASED [None]
  - DEHYDRATION [None]
  - MUSCLE RIGIDITY [None]
  - NEUROLEPTIC MALIGNANT SYNDROME [None]
  - PYREXIA [None]
  - RASH [None]
